FAERS Safety Report 7740609-0 (Version None)
Quarter: 2011Q3

REPORT INFORMATION
  Report Type: 
  Country: None (occurrence: None)
  Receive Date: 20110909
  Receipt Date: 20110902
  Transmission Date: 20111222
  Serious: Yes (Hospitalization, Other)
  Sender: FDA-Public Use
  Company Number: US-AMGEN-USASP2011045226

PATIENT
  Age: 55 Year
  Sex: Female

DRUGS (2)
  1. ENBREL [Suspect]
     Indication: ANKYLOSING SPONDYLITIS
     Dosage: 25 MG, QWK
     Dates: start: 20060304
  2. LOVENOX [Suspect]

REACTIONS (9)
  - NERVE COMPRESSION [None]
  - FALL [None]
  - JOINT INJURY [None]
  - KNEE OPERATION [None]
  - ARTHRALGIA [None]
  - PARAESTHESIA [None]
  - KNEE ARTHROPLASTY [None]
  - BURNING SENSATION [None]
  - HYPERSENSITIVITY [None]
